FAERS Safety Report 7347701-3 (Version None)
Quarter: 2011Q1

REPORT INFORMATION
  Report Type: 
  Country: None (occurrence: None)
  Receive Date: 20110311
  Receipt Date: 20110303
  Transmission Date: 20110831
  Serious: Yes (Other)
  Sender: FDA-Public Use
  Company Number: B0703471A

PATIENT
  Sex: Female

DRUGS (6)
  1. HYDREA [Concomitant]
     Route: 065
     Dates: start: 20110107, end: 20110112
  2. ZOPHREN [Suspect]
     Route: 065
     Dates: start: 20110112, end: 20110116
  3. ETOPOSIDE [Concomitant]
     Route: 065
     Dates: start: 20110107, end: 20110112
  4. IDARUBICIN [Concomitant]
     Route: 065
     Dates: start: 20110112
  5. SOLUDECADRON [Suspect]
     Route: 065
     Dates: start: 20110112, end: 20110116
  6. CYTARABINE [Concomitant]
     Route: 065
     Dates: start: 20110112

REACTIONS (1)
  - BRADYCARDIA [None]
